FAERS Safety Report 10135735 (Version 3)
Quarter: 2014Q2

REPORT INFORMATION
  Report Type: Report from Study
  Country: KR (occurrence: KR)
  Receive Date: 20140428
  Receipt Date: 20140610
  Transmission Date: 20141212
  Serious: Yes (Death, Life-Threatening, Hospitalization)
  Sender: FDA-Public Use
  Company Number: PHHO2014KR006072

PATIENT
  Sex: 0

DRUGS (2)
  1. ZOLEDRONATE [Suspect]
     Indication: METASTASES TO BONE
     Dosage: 4 MG, UNK
     Route: 042
     Dates: start: 20110808, end: 20110808
  2. PACLITAXEL [Suspect]
     Dosage: 288 MG, UNK
     Route: 042
     Dates: start: 20110808, end: 20110808

REACTIONS (1)
  - Sepsis [Fatal]
